FAERS Safety Report 24178713 (Version 1)
Quarter: 2024Q3

REPORT INFORMATION
  Report Type: Spontaneous
  Country: NZ (occurrence: NZ)
  Receive Date: 20240806
  Receipt Date: 20240806
  Transmission Date: 20241017
  Serious: Yes (Other)
  Sender: PFIZER
  Company Number: NZ-PFIZER INC-PV202400100603

PATIENT
  Age: 26 Year
  Sex: Male

DRUGS (1)
  1. TESTOSTERONE CYPIONATE [Suspect]
     Active Substance: TESTOSTERONE CYPIONATE
     Indication: Endocrine disorder
     Dosage: 75 MG
     Route: 030
     Dates: start: 20221101

REACTIONS (3)
  - Lip swelling [Not Recovered/Not Resolved]
  - Paraesthesia oral [Not Recovered/Not Resolved]
  - Injection site pain [Not Recovered/Not Resolved]
